FAERS Safety Report 6615772-5 (Version None)
Quarter: 2010Q1

REPORT INFORMATION
  Report Type: 
  Country: None (occurrence: None)
  Receive Date: 20100226
  Receipt Date: 20100210
  Transmission Date: 20100710
  Serious: Yes (Other)
  Sender: FDA-Public Use
  Company Number: TW-1180861

PATIENT
  Age: 26 Year
  Sex: Female

DRUGS (6)
  1. PROPARACAINE HYDROCHLORIDE (PROXYMETACAINE HYDROCHLORIDE) 0.5 % OPHTHA [Suspect]
     Indication: EYE PAIN
     Dosage: DILUTED TO 0.1% PRN
     Route: 047
  2. CIPROLOXACIN (CIPROLFLOXACIN) [Concomitant]
  3. FLUORMOETHOLONE (FLUROMETHOLONE) [Concomitant]
  4. AMIKACIN SULFATE [Concomitant]
  5. DICLOFENAC SODIUM [Concomitant]
  6. PREDNISOLONE ACETATE [Concomitant]

REACTIONS (11)
  - APPLICATION SITE REACTION [None]
  - CONJUNCTIVAL HYPERAEMIA [None]
  - CORNEAL DEPOSITS [None]
  - CORNEAL DISORDER [None]
  - DRUG ABUSE [None]
  - EYELID OEDEMA [None]
  - KERATITIS [None]
  - KERATOPATHY [None]
  - PHOTOPHOBIA [None]
  - PRODUCT CONTAMINATION [None]
  - STAPHYLOCOCCAL INFECTION [None]
